FAERS Safety Report 19007756 (Version 2)
Quarter: 2021Q1

REPORT INFORMATION
  Report Type: Report from Study
  Country: MX (occurrence: MX)
  Receive Date: 20210315
  Receipt Date: 20210318
  Transmission Date: 20210420
  Serious: Yes (Other)
  Sender: FDA-Public Use
  Company Number: NVSC2021MX052866

PATIENT
  Age: 60 Year
  Sex: Female
  Weight: 95 kg

DRUGS (2)
  1. ENTRESTO [Suspect]
     Active Substance: SACUBITRIL\VALSARTAN
     Indication: ARTERITIS
     Dosage: 1 DF, BID (50 MG)
     Route: 048
     Dates: start: 202012
  2. ENTRESTO [Suspect]
     Active Substance: SACUBITRIL\VALSARTAN
     Indication: CARDIOMEGALY
     Dosage: 1 DF, QD(50MG)
     Route: 048
     Dates: start: 202011

REACTIONS (7)
  - Peripheral swelling [Recovered/Resolved]
  - Chest pain [Recovered/Resolved]
  - Inappropriate schedule of product administration [Not Recovered/Not Resolved]
  - Syncope [Recovered/Resolved]
  - Prescribed underdose [Not Recovered/Not Resolved]
  - Product use in unapproved indication [Unknown]
  - Swelling face [Recovered/Resolved]

NARRATIVE: CASE EVENT DATE: 202011
